FAERS Safety Report 7090726-6 (Version None)
Quarter: 2010Q4

REPORT INFORMATION
  Report Type: 
  Country: None (occurrence: None)
  Receive Date: 20101109
  Receipt Date: 20101101
  Transmission Date: 20110411
  Serious: Yes (Hospitalization)
  Sender: FDA-Public Use
  Company Number: US-ALEXION-A201001246

PATIENT
  Sex: Male

DRUGS (10)
  1. SOLIRIS [Suspect]
     Indication: PAROXYSMAL NOCTURNAL HAEMOGLOBINURIA
     Dosage: UNK
     Route: 042
     Dates: start: 20080117
  2. SOLIRIS [Suspect]
     Dosage: 900 MG, Q2W
     Route: 042
  3. FOLIC ACID [Concomitant]
     Indication: PAROXYSMAL NOCTURNAL HAEMOGLOBINURIA
     Dosage: 1 MG, QD
     Route: 048
  4. COUMADIN [Concomitant]
     Indication: PROPHYLAXIS
     Dosage: 5 MG, 6 DAYS A WEEK
     Route: 048
  5. COUMADIN [Concomitant]
     Dosage: 6.5 MG, QW
     Route: 048
  6. OXYCODONE HCL [Concomitant]
     Dosage: 5 MG, 6 DAYS A WEEK
     Route: 048
  7. OXYCODONE HCL [Concomitant]
     Dosage: 2.5 MG, QW
     Route: 048
  8. ZIAC                               /01166101/ [Concomitant]
  9. ZOLOFT [Concomitant]
  10. PREVACID [Concomitant]

REACTIONS (2)
  - MYALGIA [None]
  - URINARY TRACT INFECTION [None]
